FAERS Safety Report 24828562 (Version 4)
Quarter: 2025Q4

REPORT INFORMATION
  Report Type: Report from Study
  Country: CA (occurrence: CA)
  Receive Date: 20250110
  Receipt Date: 20251027
  Transmission Date: 20260118
  Serious: Yes (Other)
  Sender: JOHNSON AND JOHNSON
  Company Number: CA-JNJFOC-20241167806

PATIENT
  Age: 34 Year
  Sex: Female
  Weight: 98 kg

DRUGS (5)
  1. REMICADE [Suspect]
     Active Substance: INFLIXIMAB
     Indication: Crohn^s disease
     Route: 041
     Dates: start: 20150818
  2. REMICADE [Suspect]
     Active Substance: INFLIXIMAB
     Route: 041
  3. REMICADE [Suspect]
     Active Substance: INFLIXIMAB
     Dosage: THERAPY START DATE 20-NOV-2024
     Route: 041
  4. REMICADE [Suspect]
     Active Substance: INFLIXIMAB
     Route: 041
  5. REMICADE [Suspect]
     Active Substance: INFLIXIMAB
     Route: 041

REACTIONS (6)
  - Sinusitis [Recovered/Resolved]
  - COVID-19 [Recovered/Resolved]
  - Illness [Unknown]
  - Exposure during pregnancy [Not Recovered/Not Resolved]
  - Off label use [Unknown]
  - Product dose omission issue [Unknown]

NARRATIVE: CASE EVENT DATE: 20241101
